FAERS Safety Report 17055468 (Version 1)
Quarter: 2019Q4

REPORT INFORMATION
  Report Type: Spontaneous
  Country: GB (occurrence: GB)
  Receive Date: 20191120
  Receipt Date: 20191120
  Transmission Date: 20200122
  Serious: Yes (Other)
  Sender: FDA-Public Use
  Company Number: GB-BAUSCH-BL-2019-061795

PATIENT
  Age: 22 Year
  Sex: Male

DRUGS (2)
  1. METFORMIN [Suspect]
     Active Substance: METFORMIN HYDROCHLORIDE
     Indication: DIABETES MELLITUS
     Dosage: 500 ONCE A DAY THEN UP TO TWICE A DAY.
     Route: 048
     Dates: start: 20100618, end: 20100803
  2. PARACETAMOL [Concomitant]
     Active Substance: ACETAMINOPHEN
     Indication: PRODUCT USED FOR UNKNOWN INDICATION
     Dosage: AS NEEDED/REQUIRED
     Route: 048

REACTIONS (3)
  - Aggression [Recovering/Resolving]
  - Intentional self-injury [Recovering/Resolving]
  - Mood swings [Recovering/Resolving]

NARRATIVE: CASE EVENT DATE: 2010
